FAERS Safety Report 6725651-0 (Version None)
Quarter: 2010Q2

REPORT INFORMATION
  Report Type: 
  Country: None (occurrence: None)
  Receive Date: 20100513
  Receipt Date: 20100513
  Transmission Date: 20101027
  Serious: Yes (Other)
  Sender: FDA-Public Use
  Company Number: None

PATIENT
  Age: 85 Year
  Sex: Male
  Weight: 72.5755 kg

DRUGS (1)
  1. NAMENDA [Suspect]
     Indication: MEMORY IMPAIRMENT
     Dosage: 10 MG  1 X A DAY
     Dates: start: 20100301, end: 20100401

REACTIONS (4)
  - AMNESIA [None]
  - CONDITION AGGRAVATED [None]
  - DISORIENTATION [None]
  - MEMORY IMPAIRMENT [None]
